FAERS Safety Report 8623117-4 (Version None)
Quarter: 2012Q3

REPORT INFORMATION
  Report Type: 
  Country: None (occurrence: None)
  Receive Date: 20120827
  Receipt Date: 20120817
  Transmission Date: 20120928
  Serious: Yes (Hospitalization)
  Sender: FDA-Public Use
  Company Number: US-BAYER-2012-033944

PATIENT
  Age: 34 Year
  Sex: Female

DRUGS (13)
  1. AMOXICILLIN [Concomitant]
     Indication: PHARYNGITIS
     Dosage: 500 MG, UNK
     Dates: start: 20060424
  2. YAZ [Suspect]
     Dosage: UNK
     Dates: start: 20020104, end: 20060818
  3. VITAMIN B6 [Concomitant]
     Dosage: 1 CC, UNK
     Route: 030
     Dates: start: 20060620
  4. BENICAR [Concomitant]
     Indication: HYPERTENSION
     Dosage: 20 -12.5 MG
     Dates: start: 20050114, end: 20060807
  5. NAPROXEN [Concomitant]
     Dosage: 375 MG, UNK
     Dates: start: 20060724
  6. CYCLOBENZAPRINE [Concomitant]
     Dosage: 5 MG, UNK
     Dates: start: 20060807
  7. EPIPEN [Concomitant]
     Dosage: UNK
     Dates: start: 20060424
  8. VITAMIN B-12 [Concomitant]
     Dosage: 1 CC, UNK
     Route: 030
     Dates: start: 20060523, end: 20060627
  9. HYDROCHLOROTHIAZIDE [Concomitant]
     Dosage: 12.5 MG, UNK
  10. BENICAR [Concomitant]
     Dosage: 20 -12.5 MG
  11. YASMIN [Suspect]
     Indication: CONTRACEPTION
     Dosage: UNK
     Dates: start: 20020104, end: 20060818
  12. CEFUROXIME AXETIL [Concomitant]
     Dosage: 250 MG, UNK
     Dates: start: 20060724
  13. IBUPROFEN [Concomitant]
     Dosage: 600 MG, UNK
     Dates: start: 20060807

REACTIONS (6)
  - DEEP VEIN THROMBOSIS [None]
  - EMOTIONAL DISTRESS [None]
  - INJURY [None]
  - PAIN [None]
  - ANXIETY [None]
  - PSYCHOLOGICAL TRAUMA [None]
